FAERS Safety Report 6416208-X (Version None)
Quarter: 2009Q4

REPORT INFORMATION
  Report Type: 
  Country: None (occurrence: None)
  Receive Date: 20091027
  Receipt Date: 20091022
  Transmission Date: 20100525
  Serious: Yes (Other)
  Sender: FDA-Public Use
  Company Number: US-PFIZER INC-2009255828

PATIENT
  Age: 65 Year
  Sex: Male

DRUGS (1)
  1. VIAGRA [Suspect]
     Dosage: UNK

REACTIONS (6)
  - BLINDNESS [None]
  - BLOOD PRESSURE INCREASED [None]
  - DIPLOPIA [None]
  - LACRIMATION INCREASED [None]
  - MEMORY IMPAIRMENT [None]
  - VISION BLURRED [None]
